FAERS Safety Report 11029580 (Version 1)
Quarter: 2015Q2

REPORT INFORMATION
  Report Type: Spontaneous
  Country: US (occurrence: None)
  Receive Date: 20150413
  Receipt Date: 20150413
  Transmission Date: 20150821
  Serious: Yes (Life-Threatening, Hospitalization, Disabling, Other)
  Sender: FDA-Public Use
  Company Number: None

PATIENT
  Age: 60 Year
  Sex: Female
  Weight: 74.84 kg

DRUGS (1)
  1. ENBREL [Suspect]
     Active Substance: ETANERCEPT
     Indication: RHEUMATOID ARTHRITIS
     Dosage: INTO THE MUSCLE
     Route: 030

REACTIONS (9)
  - Crying [None]
  - Pneumonia [None]
  - Frustration [None]
  - Dysuria [None]
  - Rheumatoid nodule [None]
  - Pain [None]
  - Abasia [None]
  - Sinusitis [None]
  - Weight increased [None]

NARRATIVE: CASE EVENT DATE: 20130512
